FAERS Safety Report 9432168 (Version 1)
Quarter: 2013Q3

REPORT INFORMATION
  Report Type: Spontaneous
  Country: US (occurrence: US)
  Receive Date: 20130731
  Receipt Date: 20130731
  Transmission Date: 20140515
  Serious: Yes (Death, Other)
  Sender: FDA-Public Use
  Company Number: US-TEVA-421802USA

PATIENT
  Age: 43 Year
  Sex: Male

DRUGS (5)
  1. BUPRENORPHINE [Suspect]
     Route: 048
  2. GABAPENTIN [Suspect]
     Route: 048
  3. HYDROCODONE [Suspect]
     Route: 048
  4. OXYCODONE [Suspect]
     Route: 048
  5. ETHANOL [Suspect]
     Route: 048

REACTIONS (1)
  - Toxicity to various agents [Fatal]
